FAERS Safety Report 12212731 (Version 1)
Quarter: 2016Q1

REPORT INFORMATION
  Report Type: Report from Study
  Country: ES (occurrence: ES)
  Receive Date: 20160328
  Receipt Date: 20160328
  Transmission Date: 20160526
  Serious: Yes (Other)
  Sender: FDA-Public Use
  Company Number: ES-ROCHE-1730906

PATIENT
  Sex: Female

DRUGS (4)
  1. PACLITAXEL. [Suspect]
     Active Substance: PACLITAXEL
     Indication: HER-2 POSITIVE BREAST CANCER
     Dosage: ON DAY 1, 7 AND 14
     Route: 065
  2. TRASTUZUMAB [Suspect]
     Active Substance: TRASTUZUMAB
     Indication: HER-2 POSITIVE BREAST CANCER
     Dosage: ON DAY 1, LOADING DOSE
     Route: 042
  3. TRASTUZUMAB [Suspect]
     Active Substance: TRASTUZUMAB
     Route: 042
  4. DOXORUBICIN [Suspect]
     Active Substance: DOXORUBICIN
     Indication: HER-2 POSITIVE BREAST CANCER
     Dosage: ON DAY 1
     Route: 065

REACTIONS (18)
  - Febrile neutropenia [Unknown]
  - Asthenia [Unknown]
  - Anaemia [Unknown]
  - Neuropathy peripheral [Unknown]
  - Palmar-plantar erythrodysaesthesia syndrome [Unknown]
  - Pyrexia [Unknown]
  - Diarrhoea [Unknown]
  - Alopecia [Unknown]
  - Mucosal inflammation [Unknown]
  - Constipation [Unknown]
  - Left ventricular dysfunction [Unknown]
  - Neutropenia [Unknown]
  - Hepatic enzyme abnormal [Unknown]
  - Nausea [Unknown]
  - Vomiting [Unknown]
  - Thrombocytopenia [Unknown]
  - Onycholysis [Unknown]
  - Hyperbilirubinaemia [Unknown]
